FAERS Safety Report 5381846-2 (Version None)
Quarter: 2007Q3

REPORT INFORMATION
  Report Type: 
  Country: None (occurrence: None)
  Receive Date: 20070709
  Receipt Date: 20070626
  Transmission Date: 20080115
  Serious: Yes (Other)
  Sender: FDA-Public Use
  Company Number: DE-ROCHE-503514

PATIENT
  Age: 37 Year
  Sex: Male

DRUGS (5)
  1. CELLCEPT [Suspect]
     Route: 065
  2. VALCYTE [Suspect]
     Dosage: THERAPY COMPLETED IN OCTOBER/ NOVEMBER 2006.
     Route: 065
     Dates: end: 20061101
  3. ANTIBIOTIC NOS [Concomitant]
     Indication: BACTERIAL INFECTION
  4. RAPAMUNE [Suspect]
     Indication: IMMUNOSUPPRESSION
     Route: 065
  5. DECORTIN [Suspect]
     Indication: IMMUNOSUPPRESSION
     Route: 065

REACTIONS (1)
  - ASPERMIA [None]
